FAERS Safety Report 12712409 (Version 4)
Quarter: 2016Q4

REPORT INFORMATION
  Report Type: Report from Study
  Country: US (occurrence: US)
  Receive Date: 20160902
  Receipt Date: 20161004
  Transmission Date: 20170207
  Serious: Yes (Hospitalization)
  Sender: FDA-Public Use
  Company Number: US-BRISTOL-MYERS SQUIBB COMPANY-BMS-2016-072155

PATIENT
  Age: 59 Year
  Sex: Male
  Weight: 71.5 kg

DRUGS (11)
  1. TRIAMCINOLONE [Concomitant]
     Active Substance: TRIAMCINOLONE
     Indication: RASH MACULAR
     Dosage: 1 DF, UNK
     Route: 061
     Dates: start: 20160715, end: 20160819
  2. METHIMAZOLE. [Concomitant]
     Active Substance: METHIMAZOLE
     Indication: HYPERTHYROIDISM
     Dosage: 5 MG, UNK
     Route: 048
     Dates: start: 20160722, end: 20160819
  3. MILK THISTLE PLUS                  /08512201/ [Concomitant]
     Indication: PROPHYLAXIS
     Dosage: UNK
     Route: 048
  4. ACETAMINOPHEN. [Concomitant]
     Active Substance: ACETAMINOPHEN
     Indication: HEADACHE
     Dosage: 500 MG, UNK
     Route: 048
     Dates: start: 20160707
  5. ONDANSETRON [Concomitant]
     Active Substance: ONDANSETRON
     Indication: NAUSEA
     Dosage: 8 MG, UNK
     Route: 048
     Dates: start: 20160816, end: 20160816
  6. TRAMADOLE [Concomitant]
     Indication: HEADACHE
     Dosage: 150 MG, UNK
     Route: 048
     Dates: start: 20160806
  7. LEVETIRACETAM. [Concomitant]
     Active Substance: LEVETIRACETAM
     Indication: CONVULSION PROPHYLAXIS
     Dosage: 1000 MG, UNK
     Route: 048
     Dates: start: 20160715
  8. TEMAZEPAM. [Concomitant]
     Active Substance: TEMAZEPAM
     Indication: INSOMNIA
     Dosage: 45 MG, UNK
     Route: 048
     Dates: start: 20160805
  9. NIVOLUMAB [Suspect]
     Active Substance: NIVOLUMAB
     Indication: METASTATIC MALIGNANT MELANOMA
     Dosage: 1 MG/KG, UNK
     Route: 065
     Dates: start: 20150630
  10. MULTI VITAMIN [Concomitant]
     Active Substance: VITAMINS
     Indication: ADVERSE EVENT
     Dosage: 1 TAB, UNK
     Route: 048
  11. IPILIMUMAB [Suspect]
     Active Substance: IPILIMUMAB
     Indication: METASTATIC MALIGNANT MELANOMA
     Dosage: 3 MG/KG, UNK
     Route: 065
     Dates: start: 20160630

REACTIONS (1)
  - Hyponatraemia [Recovered/Resolved]

NARRATIVE: CASE EVENT DATE: 20160827
